FAERS Safety Report 6539046-6 (Version None)
Quarter: 2010Q1

REPORT INFORMATION
  Report Type: 
  Country: None (occurrence: None)
  Receive Date: 20100115
  Receipt Date: 20100105
  Transmission Date: 20100710
  Serious: Yes (Other)
  Sender: FDA-Public Use
  Company Number: PHHY2009FR56279

PATIENT
  Sex: Female
  Weight: 75 kg

DRUGS (5)
  1. ACLASTA [Suspect]
     Indication: OSTEOPOROSIS
     Dosage: 5 MG, UNK
     Dates: start: 20090801
  2. TRANDATE [Concomitant]
     Indication: HYPERTENSION
     Dosage: 400 MG, BID
     Route: 048
  3. ZESTRIL [Concomitant]
     Indication: HYPERTENSION
     Dosage: 5 MG/DAY
     Route: 048
  4. IDEOS [Concomitant]
     Indication: OSTEOPOROSIS
     Dosage: 1 DF, BID
  5. XALATAN [Concomitant]
     Indication: GLAUCOMA

REACTIONS (3)
  - HEADACHE [None]
  - HYPERTENSION [None]
  - LEFT VENTRICULAR HYPERTROPHY [None]
